FAERS Safety Report 6968918-3 (Version None)
Quarter: 2010Q3

REPORT INFORMATION
  Report Type: 
  Country: None (occurrence: None)
  Receive Date: 20100907
  Receipt Date: 20100903
  Transmission Date: 20110219
  Serious: No
  Sender: FDA-Public Use
  Company Number: DK-TYCO HEALTHCARE/MALLINCKRODT-T201001911

PATIENT
  Sex: Male
  Weight: 105 kg

DRUGS (6)
  1. TECHNESCAN MAG3 [Suspect]
     Indication: HYPERTENSION
     Dosage: UNK
     Route: 042
     Dates: start: 20020301, end: 20020326
  2. TECHNESCAN MAG3 [Suspect]
     Route: 042
     Dates: start: 20020326
  3. CALCIUM-SANDOZ [Concomitant]
     Indication: HYPOPARATHYROIDISM
     Dosage: 500 MILLIGRAM(S)
     Route: 048
  4. SELO-ZOK [Concomitant]
     Indication: HYPERTENSION
     Dosage: 100 MILLIGRAM(S)
     Route: 048
  5. ETALPHA [Concomitant]
     Indication: HYPOPARATHYROIDISM
     Dosage: 1 MICROGRAM(S)
     Route: 048
  6. PHYSIOTENS [Concomitant]
     Indication: HYPERTENSION
     Dosage: 0.2 MILLIGRAM(S)
     Route: 048
     Dates: start: 20020221

REACTIONS (5)
  - DIARRHOEA [None]
  - LEUKOCYTURIA [None]
  - PYREXIA [None]
  - TYPE III IMMUNE COMPLEX MEDIATED REACTION [None]
  - VOMITING [None]
